FAERS Safety Report 13568600 (Version 2)
Quarter: 2018Q1

REPORT INFORMATION
  Report Type: Report from Study
  Country: US (occurrence: US)
  Receive Date: 20170522
  Receipt Date: 20180209
  Transmission Date: 20180508
  Serious: Yes (Other)
  Sender: FDA-Public Use
  Company Number: US-JNJFOC-20170520223

PATIENT
  Sex: Male

DRUGS (22)
  1. TAMSULOSIN [Suspect]
     Active Substance: TAMSULOSIN
     Indication: PRODUCT USED FOR UNKNOWN INDICATION
     Route: 065
  2. RITUXAN [Concomitant]
     Active Substance: RITUXIMAB
  3. FLUCONAZOLE. [Concomitant]
     Active Substance: FLUCONAZOLE
  4. MUCINEX [Concomitant]
     Active Substance: GUAIFENESIN
  5. NEXIUM [Concomitant]
     Active Substance: ESOMEPRAZOLE MAGNESIUM
  6. PREDNISONE. [Concomitant]
     Active Substance: PREDNISONE
  7. PROSCAR [Concomitant]
     Active Substance: FINASTERIDE
  8. ZOFRAN [Concomitant]
     Active Substance: ONDANSETRON HYDROCHLORIDE
  9. ALBUTEROL. [Concomitant]
     Active Substance: ALBUTEROL
  10. VALACYCLOVIR [Concomitant]
     Active Substance: VALACYCLOVIR HYDROCHLORIDE
  11. TORSEMIDE. [Concomitant]
     Active Substance: TORSEMIDE
  12. FLUTICASONE. [Concomitant]
     Active Substance: FLUTICASONE
  13. IMBRUVICA [Suspect]
     Active Substance: IBRUTINIB
     Indication: CHRONIC LYMPHOCYTIC LEUKAEMIA
     Route: 048
     Dates: start: 20140305
  14. ATIVAN [Concomitant]
     Active Substance: LORAZEPAM
  15. COMPAZINE [Concomitant]
     Active Substance: PROCHLORPERAZINE MALEATE
  16. SYMBICORT [Concomitant]
     Active Substance: BUDESONIDE\FORMOTEROL FUMARATE DIHYDRATE
  17. WARFARIN [Concomitant]
     Active Substance: WARFARIN
  18. ALLEGRA [Concomitant]
     Active Substance: FEXOFENADINE HYDROCHLORIDE
  19. ALLOPURINOL. [Concomitant]
     Active Substance: ALLOPURINOL
  20. CARAFATE [Concomitant]
     Active Substance: SUCRALFATE
  21. COMBIVENT [Concomitant]
     Active Substance: ALBUTEROL SULFATE\IPRATROPIUM BROMIDE
  22. VICODIN [Concomitant]
     Active Substance: ACETAMINOPHEN\HYDROCODONE BITARTRATE

REACTIONS (5)
  - Ear haemorrhage [Unknown]
  - Urinary incontinence [Unknown]
  - Ear swelling [Unknown]
  - Sunburn [Unknown]
  - Hypotension [Unknown]
